FAERS Safety Report 23682275 (Version 5)
Quarter: 2025Q1

REPORT INFORMATION
  Report Type: Report from Study
  Country: CA (occurrence: CA)
  Receive Date: 20240328
  Receipt Date: 20250321
  Transmission Date: 20250408
  Serious: Yes (Hospitalization, Other)
  Sender: LEO PHARM
  Company Number: CA-LEO Pharma-369003

PATIENT
  Age: 62 Year
  Sex: Male

DRUGS (20)
  1. ADBRY [Suspect]
     Active Substance: TRALOKINUMAB-LDRM
     Indication: Dermatitis atopic
     Route: 058
     Dates: start: 20220528
  2. ADBRY [Suspect]
     Active Substance: TRALOKINUMAB-LDRM
     Indication: Dermatitis atopic
     Route: 058
     Dates: start: 20220528
  3. ADBRY [Suspect]
     Active Substance: TRALOKINUMAB-LDRM
     Indication: Dermatitis atopic
     Route: 058
     Dates: start: 20220528
  4. ADBRY [Suspect]
     Active Substance: TRALOKINUMAB-LDRM
     Indication: Dermatitis atopic
     Route: 058
     Dates: start: 20220528
  5. ADBRY [Suspect]
     Active Substance: TRALOKINUMAB-LDRM
     Indication: Dermatitis atopic
     Dosage: MAINTENANCE DOSE: 300 MG SC EVERY 2 WEEKS.?DOSAGE FORM AND STRENGTH: 150 MG/ML PRE-FILLED SYRINGE.?T
     Route: 058
     Dates: end: 20240511
  6. ADBRY [Suspect]
     Active Substance: TRALOKINUMAB-LDRM
     Indication: Dermatitis atopic
     Dosage: MAINTENANCE DOSE: 300 MG SC EVERY 2 WEEKS.?DOSAGE FORM AND STRENGTH: 150 MG/ML PRE-FILLED SYRINGE.?T
     Route: 058
     Dates: end: 20240511
  7. ADBRY [Suspect]
     Active Substance: TRALOKINUMAB-LDRM
     Indication: Dermatitis atopic
     Dosage: MAINTENANCE DOSE: 300 MG SC EVERY 2 WEEKS.?DOSAGE FORM AND STRENGTH: 150 MG/ML PRE-FILLED SYRINGE.?T
     Route: 058
     Dates: end: 20240511
  8. ADBRY [Suspect]
     Active Substance: TRALOKINUMAB-LDRM
     Indication: Dermatitis atopic
     Dosage: MAINTENANCE DOSE: 300 MG SC EVERY 2 WEEKS.?DOSAGE FORM AND STRENGTH: 150 MG/ML PRE-FILLED SYRINGE.?T
     Route: 058
     Dates: end: 20240511
  9. ADBRY [Suspect]
     Active Substance: TRALOKINUMAB-LDRM
     Indication: Dermatitis atopic
     Dates: start: 20240731
  10. ADBRY [Suspect]
     Active Substance: TRALOKINUMAB-LDRM
     Indication: Dermatitis atopic
     Dates: start: 20240731
  11. ADBRY [Suspect]
     Active Substance: TRALOKINUMAB-LDRM
     Indication: Dermatitis atopic
     Dates: start: 20240731
  12. ADBRY [Suspect]
     Active Substance: TRALOKINUMAB-LDRM
     Indication: Dermatitis atopic
     Dates: start: 20240731
  13. ROSUVASTATIN [Concomitant]
     Active Substance: ROSUVASTATIN
     Indication: Product used for unknown indication
     Dosage: TREATMENT: ONGOING?DOSE, FREQUENCY ROUTE OF ADMINISTRATION: 1 TABLET OD
  14. BETADERM [Concomitant]
     Active Substance: BETAMETHASONE VALERATE
     Indication: Product used for unknown indication
     Dosage: TREATMENT: ONGOING?DOSE, FREQUENCY ROUTE OF ADMINISTRATION: 0.05% CREAM. APPLY TO AFFECTED AREA BID
  15. MUPIROCIN [Concomitant]
     Active Substance: MUPIROCIN
     Indication: Product used for unknown indication
     Dosage: TREATMENT: ONGOING?DOSE, FREQUENCY ROUTE OF ADMINISTRATION: APPLY TO AFFECTED AREAS TID
  16. HYDROCORTISONE\PRAMOXINE\ZINC SULFATE [Concomitant]
     Active Substance: HYDROCORTISONE\PRAMOXINE\ZINC SULFATE
     Indication: Product used for unknown indication
     Dosage: TREATMENT: ONGOING?DOSE, FREQUENCY ROUTE OF ADMINISTRATION: APPLY TO AFFECTED AREA BID AS NEEDED.
  17. CLOBETASOL [Concomitant]
     Active Substance: CLOBETASOL
     Indication: Product used for unknown indication
     Dosage: TREATMENT: ONGOING?DOSE, FREQUENCY ROUTE OF ADMINISTRATION: APPLY TO AFFECTED AREA BID AS NEEDED X 1
  18. CETIRIZINE [Concomitant]
     Active Substance: CETIRIZINE HYDROCHLORIDE
     Indication: Product used for unknown indication
     Dosage: TREATMENT: ONGOING?DOSE, FREQUENCY ROUTE OF ADMINISTRATION: 20 MG 1/2 TABLET DAILY
  19. MOMETASONE [Concomitant]
     Active Substance: MOMETASONE
     Indication: Product used for unknown indication
  20. PROTOPIC [Concomitant]
     Active Substance: TACROLIMUS
     Indication: Product used for unknown indication

REACTIONS (7)
  - Nasopharyngitis [Unknown]
  - Malaise [Unknown]
  - Influenza like illness [Not Recovered/Not Resolved]
  - Illness [Not Recovered/Not Resolved]
  - Illness [Not Recovered/Not Resolved]
  - Cough [Not Recovered/Not Resolved]
  - Diarrhoea [Unknown]

NARRATIVE: CASE EVENT DATE: 20250201
